FAERS Safety Report 13265605 (Version 1)
Quarter: 2017Q1

REPORT INFORMATION
  Report Type: Spontaneous
  Country: US (occurrence: US)
  Receive Date: 20170223
  Receipt Date: 20170223
  Transmission Date: 20170428
  Serious: Yes (Other)
  Sender: FDA-Public Use
  Company Number: US-SAOL THERAPEUTICS-2017SAO00353

PATIENT
  Sex: Male

DRUGS (3)
  1. INJECTED/INJECTABLE MEDICAITON -NOT THE PUMP MEDICATION (UNSPECIFIED) [Suspect]
     Active Substance: UNSPECIFIED INGREDIENT
  2. BACLOFEN. [Suspect]
     Active Substance: BACLOFEN
     Indication: MUSCLE SPASTICITY
     Dosage: 400 ?G, \DAY
  3. BACLOFEN. [Suspect]
     Active Substance: BACLOFEN
     Indication: MUSCLE SPASTICITY
     Dosage: 715 ?G, \DAY

REACTIONS (10)
  - Insomnia [Unknown]
  - Dysgraphia [Unknown]
  - Malaise [Unknown]
  - Weight decreased [Unknown]
  - Vision blurred [Unknown]
  - Therapeutic response decreased [Unknown]
  - Amnesia [Unknown]
  - Muscle spasms [Unknown]
  - Implant site pain [Unknown]
  - Nausea [Unknown]

NARRATIVE: CASE EVENT DATE: 20151210
